FAERS Safety Report 8505282-2 (Version None)
Quarter: 2012Q3

REPORT INFORMATION
  Report Type: 
  Country: None (occurrence: None)
  Receive Date: 20120712
  Receipt Date: 20120703
  Transmission Date: 20120928
  Serious: Yes (Hospitalization)
  Sender: FDA-Public Use
  Company Number: JP-VERTEX PHARMACEUTICALS INC.-AE-2012-008163

PATIENT
  Age: 52 Year
  Sex: Male

DRUGS (5)
  1. TELAVIC (TELAPREVIR) [Suspect]
     Indication: HEPATITIS C
     Route: 048
     Dates: start: 20120324, end: 20120325
  2. PEGINTERFERON ALFA-2B [Concomitant]
     Route: 058
     Dates: start: 20120324, end: 20120328
  3. REBETOL [Concomitant]
     Route: 048
     Dates: start: 20120324, end: 20120328
  4. URSO 250 [Concomitant]
     Route: 048
     Dates: start: 20100807
  5. OMEPRAZOLE [Concomitant]
     Route: 048
     Dates: start: 20120324, end: 20120330

REACTIONS (1)
  - TOXIC SKIN ERUPTION [None]
